FAERS Safety Report 4609145-4 (Version None)
Quarter: 2005Q1

REPORT INFORMATION
  Report Type: 
  Country: None (occurrence: None)
  Receive Date: 20050311
  Receipt Date: 20050217
  Transmission Date: 20050727
  Serious: Yes (Hospitalization)
  Sender: FDA-Public Use
  Company Number: D-05-006

PATIENT
  Age: 44 Year
  Sex: Female

DRUGS (2)
  1. JANTOVEN (WARFARIN SODIUM) 5 MG; USL [Suspect]
     Indication: THROMBOSIS
     Dosage: 5 MG QD PO
     Route: 048
     Dates: start: 20040114, end: 20050202
  2. JANTOVEN (WARFARIN SODIUM); USL [Suspect]
     Indication: THROMBOSIS
     Dosage: MG QD PO
     Route: 048
     Dates: start: 20041227, end: 20040113

REACTIONS (1)
  - CHEST PAIN [None]
